FAERS Safety Report 6143058-4 (Version None)
Quarter: 2009Q2

REPORT INFORMATION
  Report Type: 
  Country: None (occurrence: None)
  Receive Date: 20090403
  Receipt Date: 20090324
  Transmission Date: 20091009
  Serious: Yes (Hospitalization)
  Sender: FDA-Public Use
  Company Number: US-ABBOTT-09P-163-0564336-00

PATIENT
  Sex: Female
  Weight: 98.064 kg

DRUGS (6)
  1. HUMIRA [Suspect]
     Indication: CROHN'S DISEASE
     Route: 058
     Dates: start: 20081209, end: 20090217
  2. LEVBID [Concomitant]
     Indication: GASTROOESOPHAGEAL REFLUX DISEASE
     Dates: start: 20051011
  3. TOPAMAX [Concomitant]
     Indication: MIGRAINE
     Dates: start: 20051011
  4. OVCON-35 [Concomitant]
     Indication: CONTRACEPTION
     Dates: start: 20070406
  5. ZENCHENT [Concomitant]
     Indication: CONTRACEPTION
     Dates: start: 20081030
  6. SUDEX DUOMATRIX [Concomitant]
     Indication: NASOPHARYNGITIS
     Dates: start: 20081030

REACTIONS (4)
  - ANAEMIA [None]
  - APHTHOUS STOMATITIS [None]
  - HERPES ZOSTER [None]
  - PNEUMONIA [None]
